FAERS Safety Report 9702533 (Version 1)
Quarter: 2013Q4

REPORT INFORMATION
  Report Type: Spontaneous
  Country: GB (occurrence: GB)
  Receive Date: 20131121
  Receipt Date: 20131121
  Transmission Date: 20140711
  Serious: Yes (Other)
  Sender: FDA-Public Use
  Company Number: GB-WATSON-2013-21389

PATIENT
  Sex: Male

DRUGS (1)
  1. OMEPRAZOLE (UNKNOWN) [Suspect]
     Indication: DIVERTICULITIS
     Dosage: 10 MG, BID
     Route: 048

REACTIONS (2)
  - Diverticulitis [Unknown]
  - Product quality issue [Unknown]
